FAERS Safety Report 16956233 (Version 1)
Quarter: 2019Q4

REPORT INFORMATION
  Report Type: Spontaneous
  Country: CA (occurrence: CA)
  Receive Date: 20191024
  Receipt Date: 20191024
  Transmission Date: 20200122
  Serious: Yes (Hospitalization)
  Sender: FDA-Public Use
  Company Number: CA-PFIZER INC-2019454548

PATIENT
  Age: 75 Year
  Sex: Female

DRUGS (9)
  1. DILANTIN [Suspect]
     Active Substance: PHENYTOIN
     Indication: SEIZURE
     Dosage: 100 MG, 3X/DAY
     Route: 048
  2. METOPROLOL. [Concomitant]
     Active Substance: METOPROLOL
     Dosage: UNK
  3. SEROQUEL [Concomitant]
     Active Substance: QUETIAPINE FUMARATE
     Dosage: UNK
  4. PLAVIX [Concomitant]
     Active Substance: CLOPIDOGREL BISULFATE
     Dosage: UNK
  5. ATIVAN [Concomitant]
     Active Substance: LORAZEPAM
     Dosage: UNK
  6. METFORMIN [Concomitant]
     Active Substance: METFORMIN HYDROCHLORIDE
     Dosage: UNK
  7. HYDROCHLOROTHIAZIDE. [Concomitant]
     Active Substance: HYDROCHLOROTHIAZIDE
     Dosage: UNK
  8. LITHIUM. [Concomitant]
     Active Substance: LITHIUM
     Dosage: UNK
  9. PANTOPRAZOLE [Concomitant]
     Active Substance: PANTOPRAZOLE
     Dosage: UNK

REACTIONS (10)
  - Mouth ulceration [Unknown]
  - Pyrexia [Unknown]
  - Rash pustular [Unknown]
  - Urticaria [Unknown]
  - Decreased appetite [Unknown]
  - Erythema [Unknown]
  - Rash erythematous [Unknown]
  - Diarrhoea [Unknown]
  - Lip discolouration [Unknown]
  - Dyspnoea [Unknown]
